FAERS Safety Report 6314220-2 (Version None)
Quarter: 2009Q3

REPORT INFORMATION
  Report Type: 
  Country: None (occurrence: None)
  Receive Date: 20090817
  Receipt Date: 20090807
  Transmission Date: 20100115
  Serious: Yes (Other)
  Sender: FDA-Public Use
  Company Number: 1000008057

PATIENT
  Sex: Male

DRUGS (2)
  1. BYSTOLIC [Suspect]
  2. BYSTOLIC [Suspect]

REACTIONS (1)
  - PARKINSONISM [None]
